FAERS Safety Report 6843066-1 (Version None)
Quarter: 2010Q3

REPORT INFORMATION
  Report Type: 
  Country: None (occurrence: None)
  Receive Date: 20100712
  Receipt Date: 20100701
  Transmission Date: 20110219
  Serious: Yes (Life-Threatening, Hospitalization, Disabling, Other)
  Sender: FDA-Public Use
  Company Number: 2010AC000050

PATIENT
  Age: 83 Year
  Sex: Female
  Weight: 74.8435 kg

DRUGS (38)
  1. DIGOXIN [Suspect]
     Dosage: PO
     Route: 048
     Dates: start: 20071201
  2. DIGOXIN [Suspect]
     Dosage: 0.125 MG, QD, PO
     Route: 048
     Dates: end: 20060809
  3. DIGOXIN [Suspect]
     Dosage: 0.125 MG, QOD;PO
     Route: 048
     Dates: start: 20060810
  4. DIGOXIN [Suspect]
     Dosage: 0.50 MG, QOD, PO
     Route: 048
     Dates: end: 20080123
  5. DIGOXIN [Suspect]
     Dosage: 0.75 MG, QOD, PO
     Route: 048
     Dates: end: 20080123
  6. DIGOXIN [Suspect]
     Dosage: 0.50 MG, QOD, PO
     Route: 048
  7. DIGOXIN [Suspect]
     Dosage: 0.75 MG, QOD, PO
     Route: 048
  8. LASIX [Concomitant]
  9. COUMADIN [Concomitant]
  10. VERAPAMIL [Concomitant]
  11. APRESOLINE [Concomitant]
  12. CEFOTAXIME SODIUM [Concomitant]
  13. AZITHROMYCIN [Concomitant]
  14. POTASSIUM [Concomitant]
  15. ALBUTEROL SULATE [Concomitant]
  16. ROBITUSSIN AC [Concomitant]
  17. TRAMADOL HCL [Concomitant]
  18. LEXAPRO [Concomitant]
  19. MEVACOR [Concomitant]
  20. GLUCOSAMINE SULFATE [Concomitant]
  21. NEURONTIN [Concomitant]
  22. LISINOPRIL [Concomitant]
  23. FEXOFENADINE [Concomitant]
  24. ARTHROTEC [Concomitant]
  25. ASPIRIN [Concomitant]
  26. VITAMIN D [Concomitant]
  27. MAGNESIUM [Concomitant]
  28. ZINC [Concomitant]
  29. TYLENOL [Concomitant]
  30. ZYRTEC [Concomitant]
  31. CALCIUM [Concomitant]
  32. FLAX SEED [Concomitant]
  33. CRANBERRY [Concomitant]
  34. VITAMIN C [Concomitant]
  35. CITRACAL [Concomitant]
  36. PLAVIX [Concomitant]
  37. LABETALOL HCL [Concomitant]
  38. DIGIBIND [Concomitant]

REACTIONS (96)
  - ABASIA [None]
  - ALANINE AMINOTRANSFERASE INCREASED [None]
  - ANXIETY [None]
  - AORTIC STENOSIS [None]
  - AORTIC VALVE CALCIFICATION [None]
  - APNOEA [None]
  - ARRHYTHMIA [None]
  - ARTHRALGIA [None]
  - ASPARTATE AMINOTRANSFERASE INCREASED [None]
  - ASTHENIA [None]
  - ATRIAL FIBRILLATION [None]
  - ATRIAL SEPTAL DEFECT [None]
  - BLOOD ALBUMIN DECREASED [None]
  - BLOOD ALKALINE PHOSPHATASE INCREASED [None]
  - BLOOD BILIRUBIN INCREASED [None]
  - BLOOD CREATININE INCREASED [None]
  - BLOOD GLUCOSE INCREASED [None]
  - BLOOD POTASSIUM DECREASED [None]
  - BLOOD PRESSURE INCREASED [None]
  - BRAIN NATRIURETIC PEPTIDE INCREASED [None]
  - BREATH SOUNDS ABNORMAL [None]
  - BRONCHITIS [None]
  - BUNDLE BRANCH BLOCK RIGHT [None]
  - CARDIAC MURMUR [None]
  - CARDIOACTIVE DRUG LEVEL DECREASED [None]
  - CARDIOACTIVE DRUG LEVEL INCREASED [None]
  - CARDIOMEGALY [None]
  - CAROTID BRUIT [None]
  - CARPAL TUNNEL SYNDROME [None]
  - CELLULITIS [None]
  - CEREBELLAR INFARCTION [None]
  - CEREBRAL ATROPHY [None]
  - CEREBROVASCULAR ACCIDENT [None]
  - CHOKING [None]
  - CLAVICLE FRACTURE [None]
  - CONFUSIONAL STATE [None]
  - COORDINATION ABNORMAL [None]
  - COUGH [None]
  - DIABETES MELLITUS INADEQUATE CONTROL [None]
  - DILATATION ATRIAL [None]
  - DILATATION VENTRICULAR [None]
  - DYSPHAGIA [None]
  - ECONOMIC PROBLEM [None]
  - ELECTROCARDIOGRAM QT PROLONGED [None]
  - ELECTROCARDIOGRAM ST SEGMENT ABNORMAL [None]
  - ELECTROCARDIOGRAM T WAVE ABNORMAL [None]
  - FALL [None]
  - FATIGUE [None]
  - FEMORAL ARTERIAL STENOSIS [None]
  - GENERALISED ANXIETY DISORDER [None]
  - GLOMERULAR FILTRATION RATE DECREASED [None]
  - HIP FRACTURE [None]
  - HYPERHIDROSIS [None]
  - HYPERTENSION [None]
  - HYPOAESTHESIA [None]
  - ISCHAEMIC CEREBRAL INFARCTION [None]
  - JOINT SWELLING [None]
  - LEFT VENTRICULAR HYPERTROPHY [None]
  - LOBAR PNEUMONIA [None]
  - MALAISE [None]
  - MITRAL VALVE CALCIFICATION [None]
  - MITRAL VALVE INCOMPETENCE [None]
  - MULTIPLE INJURIES [None]
  - MUSCULAR WEAKNESS [None]
  - NAUSEA [None]
  - NODAL RHYTHM [None]
  - OEDEMA [None]
  - OEDEMA PERIPHERAL [None]
  - OROPHARYNGEAL PAIN [None]
  - OSTEOPENIA [None]
  - PAIN IN EXTREMITY [None]
  - PARAESTHESIA [None]
  - PERIPHERAL ARTERIAL OCCLUSIVE DISEASE [None]
  - PERIPHERAL VASCULAR DISORDER [None]
  - PNEUMONIA [None]
  - POLYNEUROPATHY [None]
  - POPLITEAL PULSE DECREASED [None]
  - PRODUCTIVE COUGH [None]
  - PULMONARY CONGESTION [None]
  - PULMONARY HYPERTENSION [None]
  - PYREXIA [None]
  - RALES [None]
  - RENAL ARTERY STENOSIS [None]
  - SENSORY DISTURBANCE [None]
  - SEPSIS [None]
  - SKIN ULCER [None]
  - SPIDER VEIN [None]
  - SPINAL COMPRESSION FRACTURE [None]
  - SPINAL OSTEOARTHRITIS [None]
  - SYNCOPE [None]
  - THERAPEUTIC AGENT TOXICITY [None]
  - THYROID NEOPLASM [None]
  - TREATMENT NONCOMPLIANCE [None]
  - TRICUSPID VALVE INCOMPETENCE [None]
  - VENOUS INSUFFICIENCY [None]
  - VISUAL IMPAIRMENT [None]
